FAERS Safety Report 8960215 (Version 2)
Quarter: 2012Q4

REPORT INFORMATION
  Report Type: 
  Country: JP (occurrence: JP)
  Receive Date: 20121211
  Receipt Date: 20121219
  Transmission Date: 20130627
  Serious: Yes (Other)
  Sender: FDA-Public Use
  Company Number: JP-PFIZER INC-2012310428

PATIENT
  Age: 63 Year
  Sex: Male

DRUGS (3)
  1. LYRICA [Suspect]
     Dosage: 150 mg, 2x/day
     Route: 048
  2. LYRICA [Suspect]
     Dosage: 75 mg, 4x/day
     Route: 048
  3. TAKEPRON [Concomitant]
     Dosage: UNK
     Route: 048
     Dates: end: 2012

REACTIONS (1)
  - Hepatic function abnormal [Recovered/Resolved]
